FAERS Safety Report 12105260 (Version 1)
Quarter: 2016Q1

REPORT INFORMATION
  Report Type: Spontaneous
  Country: BR (occurrence: BR)
  Receive Date: 20160223
  Receipt Date: 20160223
  Transmission Date: 20160526
  Serious: Yes (Hospitalization, Other)
  Sender: FDA-Public Use
  Company Number: BR-GLAXOSMITHKLINE-BR2016GSK024888

PATIENT
  Sex: Female
  Weight: 68 kg

DRUGS (1)
  1. SERETIDE [Suspect]
     Active Substance: FLUTICASONE FUROATE\SALMETEROL XINAFOATE
     Indication: ASTHMA
     Dosage: 60 DOSES,1 PUFF(S), BID
     Route: 055

REACTIONS (2)
  - Condition aggravated [Unknown]
  - Asthmatic crisis [Recovered/Resolved]
